FAERS Safety Report 6722836-4 (Version None)
Quarter: 2010Q2

REPORT INFORMATION
  Report Type: 
  Country: None (occurrence: None)
  Receive Date: 20100512
  Receipt Date: 20100512
  Transmission Date: 20101027
  Serious: Yes (Hospitalization)
  Sender: FDA-Public Use
  Company Number: None

PATIENT
  Sex: Male
  Weight: 30.7 kg

DRUGS (1)
  1. ETHOSUXIMIDE [Suspect]
     Indication: EPILEPSY
     Dosage: 250-750 MG DAILY PO
     Route: 048
     Dates: start: 20100118, end: 20100225

REACTIONS (8)
  - ABDOMINAL PAIN [None]
  - ARTHRALGIA [None]
  - COGNITIVE DISORDER [None]
  - DIZZINESS [None]
  - HEADACHE [None]
  - LACRIMATION INCREASED [None]
  - PAIN [None]
  - TREMOR [None]
